FAERS Safety Report 10783428 (Version 1)
Quarter: 2015Q1

REPORT INFORMATION
  Report Type: Spontaneous
  Country: DE (occurrence: DE)
  Receive Date: 20150210
  Receipt Date: 20150210
  Transmission Date: 20150721
  Serious: Yes (Other)
  Sender: FDA-Public Use
  Company Number: ALCN2015DE001084

PATIENT
  Age: 73 Year
  Sex: Female

DRUGS (2)
  1. MYLEPSINUM [Concomitant]
     Active Substance: PRIMIDONE
     Dosage: UNK
  2. AZOPT [Suspect]
     Active Substance: BRINZOLAMIDE
     Dosage: UNK
     Route: 047

REACTIONS (1)
  - Cerebral haemorrhage [Unknown]
